FAERS Safety Report 7895356-1 (Version None)
Quarter: 2011Q4

REPORT INFORMATION
  Report Type: 
  Country: None (occurrence: None)
  Receive Date: 20111106
  Receipt Date: 20110825
  Transmission Date: 20120403
  Serious: No
  Sender: FDA-Public Use
  Company Number: US-AMGEN-USASP2011043548

PATIENT
  Age: 55 Year
  Sex: Female

DRUGS (3)
  1. ENBREL [Suspect]
     Indication: RHEUMATOID ARTHRITIS
     Dosage: 25 MG, 2 TIMES/WK
     Dates: start: 20050425, end: 20110401
  2. ENBREL [Suspect]
     Indication: AUTOIMMUNE INNER EAR DISEASE
  3. HUMIRA [Concomitant]

REACTIONS (4)
  - RASH PRURITIC [None]
  - VERTIGO [None]
  - DIZZINESS [None]
  - URTICARIA [None]
